FAERS Safety Report 8260424-1 (Version None)
Quarter: 2012Q2

REPORT INFORMATION
  Report Type: 
  Country: None (occurrence: None)
  Receive Date: 20120404
  Receipt Date: 20120328
  Transmission Date: 20120825
  Serious: Yes (Hospitalization, Other)
  Sender: FDA-Public Use
  Company Number: PHHY2012TW026756

PATIENT
  Age: 27 Year
  Sex: Female

DRUGS (5)
  1. ZOLPIDEM [Suspect]
     Indication: ANXIETY
     Dosage: 10-20 MG/D
  2. METHYLPREDNISOLONE [Concomitant]
     Indication: ANKYLOSING SPONDYLITIS
     Dosage: 750 MG, QD FOR A 3-DAY REGIMEN
     Route: 042
  3. ZOLPIDEM [Suspect]
     Indication: MOOD SWINGS
     Dosage: 100-200 MG PER DAY FOR 2 YEARS
  4. ZOLPIDEM [Suspect]
     Indication: INSOMNIA
     Dosage: 20 MG, QD
  5. PREDNISOLONE [Concomitant]
     Indication: ANKYLOSING SPONDYLITIS
     Dosage: 5-10 MG/D
     Route: 048

REACTIONS (17)
  - MUSCLE RIGIDITY [None]
  - DROOLING [None]
  - WAXY FLEXIBILITY [None]
  - PROTRUSION TONGUE [None]
  - TREMOR [None]
  - STARING [None]
  - PYURIA [None]
  - TACHYCARDIA [None]
  - CATATONIA [None]
  - HAEMATURIA [None]
  - SOMNOLENCE [None]
  - POSTURE ABNORMAL [None]
  - BLOOD PRESSURE INCREASED [None]
  - LEUKOCYTOSIS [None]
  - INTENTIONAL DRUG MISUSE [None]
  - HYPERHIDROSIS [None]
  - POSTURAL REFLEX IMPAIRMENT [None]
